FAERS Safety Report 5018217-4 (Version None)
Quarter: 2006Q2

REPORT INFORMATION
  Report Type: 
  Country: None (occurrence: None)
  Receive Date: 20060530
  Receipt Date: 20060516
  Transmission Date: 20061013
  Serious: Yes (Death)
  Sender: FDA-Public Use
  Company Number: 2006064228

PATIENT
  Age: 63 Year
  Sex: Male
  Weight: 90 kg

DRUGS (1)
  1. BEXTRA [Suspect]
     Indication: ARTHRALGIA
     Dosage: 20 MG, CYCLIC ,ORAL
     Route: 048
     Dates: start: 20050204, end: 20050315

REACTIONS (4)
  - CARDIAC ARREST [None]
  - FATIGUE [None]
  - MALAISE [None]
  - TREATMENT NONCOMPLIANCE [None]
